FAERS Safety Report 20600156 (Version 7)
Quarter: 2022Q4

REPORT INFORMATION
  Report Type: Spontaneous
  Country: AU (occurrence: AU)
  Receive Date: 20220316
  Receipt Date: 20221201
  Transmission Date: 20230113
  Serious: Yes (Other)
  Sender: FDA-Public Use
  Company Number: AU-GSKCCFAPAC-Case-01442337_AE-55788

PATIENT

DRUGS (2)
  1. VENTOLIN HFA [Suspect]
     Active Substance: ALBUTEROL SULFATE
     Indication: Asthma
     Dosage: UNK 1X200D
     Route: 055
  2. ALBUTEROL SULFATE [Suspect]
     Active Substance: ALBUTEROL SULFATE
     Indication: Asthma
     Dosage: UNK
     Route: 055

REACTIONS (9)
  - Near death experience [Unknown]
  - Asphyxia [Unknown]
  - Drug ineffective [Unknown]
  - Product dose omission issue [Unknown]
  - Device failure [Unknown]
  - Dyspnoea [Unknown]
  - Asthma [Unknown]
  - Wrong technique in product usage process [Unknown]
  - Product complaint [Unknown]
